FAERS Safety Report 21267777 (Version 1)
Quarter: 2022Q3

REPORT INFORMATION
  Report Type: Other
  Country: US (occurrence: US)
  Receive Date: 20220829
  Receipt Date: 20220829
  Transmission Date: 20221026
  Serious: No
  Sender: FDA-Public Use
  Company Number: US-MAYNE PHARMA-2022MYN000125

PATIENT
  Age: 75 Year
  Sex: Female

DRUGS (3)
  1. CARBIDOPA\LEVODOPA [Suspect]
     Active Substance: CARBIDOPA\LEVODOPA
     Indication: Parkinsonism
     Dosage: 25 MG, TAKES 2 PILLS 4 TIMES PER DAY
     Route: 048
     Dates: start: 20210101
  2. CARBIDOPA\LEVODOPA [Suspect]
     Active Substance: CARBIDOPA\LEVODOPA
     Dosage: 100 MG
     Route: 048
     Dates: start: 20210101
  3. PAXLOVID [Suspect]
     Active Substance: NIRMATRELVIR\RITONAVIR
     Indication: COVID-19
     Dosage: UNK, BID, 3 TABLETS EVERY 12 HRS
     Route: 048
     Dates: start: 20220401, end: 20220405

REACTIONS (4)
  - Nausea [Unknown]
  - Constipation [Unknown]
  - Drug ineffective [Unknown]
  - Drug interaction [Unknown]
